FAERS Safety Report 8387904-2 (Version None)
Quarter: 2012Q2

REPORT INFORMATION
  Report Type: 
  Country: None (occurrence: None)
  Receive Date: 20120525
  Receipt Date: 20120521
  Transmission Date: 20120825
  Serious: Yes (Hospitalization, Other)
  Sender: FDA-Public Use
  Company Number: JP-B.I. PHARMACEUTICALS,INC./RIDGEFIELD-2012-EU-02579GD

PATIENT
  Age: 76 Year
  Sex: Female

DRUGS (3)
  1. MELOXICAM [Suspect]
     Indication: BACK PAIN
     Dates: start: 20110401
  2. AMLODIPINE BESYLATE [Suspect]
     Indication: HYPERTENSION
     Dates: start: 20110401
  3. ANTIHYPERTENSIVE AGENT [Concomitant]
     Indication: HYPERTENSION

REACTIONS (4)
  - PULMONARY EMBOLISM [None]
  - PNEUMONIA [None]
  - DYSPNOEA EXERTIONAL [None]
  - HYPOXIA [None]
